FAERS Safety Report 8130963-2 (Version None)
Quarter: 2012Q1

REPORT INFORMATION
  Report Type: 
  Country: None (occurrence: None)
  Receive Date: 20120213
  Receipt Date: 20120208
  Transmission Date: 20120608
  Serious: Yes (Other)
  Sender: FDA-Public Use
  Company Number: US-PFIZER INC-2012035508

PATIENT
  Age: 57 Year
  Sex: Male
  Weight: 90 kg

DRUGS (3)
  1. INDOMETHACIN [Concomitant]
     Indication: GOUT
     Dosage: UNK
     Route: 048
  2. PREDNISONE [Concomitant]
     Indication: GOUT
     Dosage: UNK
     Route: 048
  3. SOLU-MEDROL [Suspect]
     Indication: GOUT
     Dosage: 125 MG, UNK
     Dates: start: 20120207

REACTIONS (1)
  - HYPERSENSITIVITY [None]
